FAERS Safety Report 12594220 (Version 1)
Quarter: 2016Q3

REPORT INFORMATION
  Report Type: Spontaneous
  Country: BR (occurrence: BR)
  Receive Date: 20160726
  Receipt Date: 20160726
  Transmission Date: 20161109
  Serious: Yes (Other)
  Sender: FDA-Public Use
  Company Number: BR-PFIZER INC-2016354422

PATIENT
  Age: 12 Year
  Sex: Male

DRUGS (4)
  1. DOSTINEX [Suspect]
     Active Substance: CABERGOLINE
     Indication: BLOOD PROLACTIN INCREASED
     Dosage: UNK, 2X/WEEK
     Dates: start: 2006
  2. DOSTINEX [Suspect]
     Active Substance: CABERGOLINE
     Dosage: UNK, 3X/WEEK
  3. DOSTINEX [Suspect]
     Active Substance: CABERGOLINE
     Dosage: UNK, 1X/DAY
  4. CABERGOLINE. [Suspect]
     Active Substance: CABERGOLINE
     Dosage: UNK
     Dates: start: 2015

REACTIONS (3)
  - Product use issue [Not Recovered/Not Resolved]
  - Pituitary tumour [Recovering/Resolving]
  - Drug ineffective [Not Recovered/Not Resolved]

NARRATIVE: CASE EVENT DATE: 2006
